FAERS Safety Report 6686338-6 (Version None)
Quarter: 2010Q2

REPORT INFORMATION
  Report Type: 
  Country: None (occurrence: None)
  Receive Date: 20100415
  Receipt Date: 20100415
  Transmission Date: 20101027
  Serious: Yes (Other)
  Sender: FDA-Public Use
  Company Number: None

PATIENT
  Sex: Female

DRUGS (6)
  1. LAMOTRIGINE [Suspect]
     Indication: OSTEOARTHRITIS
     Dosage: ONCE AM AND TWICE HS
     Dates: start: 20091201
  2. LAMICTAL [Suspect]
     Dosage: ONCE AM AND TWICE HS
     Dates: start: 20080407, end: 20091101
  3. SEROQUEL [Concomitant]
  4. TRAZODONE HCL [Concomitant]
  5. ZOLOFT [Concomitant]
  6. KLONOPIN [Concomitant]

REACTIONS (9)
  - ANXIETY [None]
  - APATHY [None]
  - ASTHENIA [None]
  - CRYING [None]
  - DEPRESSION [None]
  - DISTURBANCE IN ATTENTION [None]
  - MEMORY IMPAIRMENT [None]
  - MOOD SWINGS [None]
  - PRODUCT SUBSTITUTION ISSUE [None]
